FAERS Safety Report 17307014 (Version 1)
Quarter: 2020Q1

REPORT INFORMATION
  Report Type: Spontaneous
  Country: US (occurrence: US)
  Receive Date: 20200123
  Receipt Date: 20200123
  Transmission Date: 20200409
  Serious: No
  Sender: FDA-Public Use
  Company Number: US-EAGLE PHARMACEUTICALS, INC.-US-2019EAG000040

PATIENT
  Age: 68 Year
  Sex: Male
  Weight: 82.54 kg

DRUGS (9)
  1. RITUXAN [Concomitant]
     Active Substance: RITUXIMAB
     Indication: NON-HODGKIN^S LYMPHOMA
     Dosage: CYCLE 1, UNK
     Route: 042
     Dates: start: 201905, end: 201905
  2. RITUXAN [Concomitant]
     Active Substance: RITUXIMAB
     Dosage: CYCLE 3, UNK
     Route: 042
     Dates: start: 201907, end: 201907
  3. DEXAMETHASONE. [Concomitant]
     Active Substance: DEXAMETHASONE
     Indication: PREMEDICATION
     Route: 065
  4. RITUXAN [Concomitant]
     Active Substance: RITUXIMAB
     Dosage: CYCLE 2, UNK
     Route: 042
     Dates: start: 20190618, end: 20190619
  5. 5-FU                               /00098801/ [Concomitant]
     Active Substance: FLUOROURACIL
     Indication: PRODUCT USED FOR UNKNOWN INDICATION
     Dosage: UNK
     Route: 065
     Dates: start: 201906
  6. BENDEKA [Suspect]
     Active Substance: BENDAMUSTINE HYDROCHLORIDE
     Dosage: CYCLE 3, WITH NSS, AT A HIGHER RATE THROUGH PIC LINE
     Route: 042
     Dates: start: 201907, end: 201907
  7. BENDEKA [Suspect]
     Active Substance: BENDAMUSTINE HYDROCHLORIDE
     Dosage: CYCLE 2, 200 MG, INFUSED OVER 10 MINUTES
     Route: 042
     Dates: start: 20190618, end: 20190619
  8. BENDEKA [Suspect]
     Active Substance: BENDAMUSTINE HYDROCHLORIDE
     Indication: NON-HODGKIN^S LYMPHOMA
     Dosage: CYCLE 1, 200 MG DILUTED IN 50 ML NSS INFUSED OVER TEN MINUTES
     Route: 042
     Dates: start: 201905, end: 201905
  9. ONDANSETRON [Concomitant]
     Active Substance: ONDANSETRON
     Indication: PREMEDICATION
     Route: 065

REACTIONS (1)
  - Infusion site phlebitis [Recovering/Resolving]

NARRATIVE: CASE EVENT DATE: 201906
